FAERS Safety Report 7875452-5 (Version None)
Quarter: 2011Q4

REPORT INFORMATION
  Report Type: 
  Country: None (occurrence: None)
  Receive Date: 20111031
  Receipt Date: 20111019
  Transmission Date: 20120403
  Serious: Yes (Disabling)
  Sender: FDA-Public Use
  Company Number: PHHY2011PT91397

PATIENT
  Sex: Female

DRUGS (6)
  1. RASILEZ [Suspect]
     Indication: HYPERTENSION
     Dosage: 300 MG, QD
     Route: 048
     Dates: start: 20110801, end: 20110901
  2. LOSARTAN POTASSIUM AND HYDROCHLOROTHIAZIDE [Concomitant]
     Indication: HYPERTENSION
  3. IMDUR [Concomitant]
     Indication: ISCHAEMIC CARDIOMYOPATHY
  4. NEBIVOLOL HCL [Concomitant]
     Indication: HYPERTENSION
  5. FENOFIBRATE [Concomitant]
     Indication: DYSLIPIDAEMIA
  6. DIAMICRON [Concomitant]
     Indication: DIABETES MELLITUS

REACTIONS (1)
  - MYALGIA [None]
